FAERS Safety Report 17127628 (Version 2)
Quarter: 2020Q1

REPORT INFORMATION
  Report Type: Spontaneous
  Country: US (occurrence: US)
  Receive Date: 20191209
  Receipt Date: 20200122
  Transmission Date: 20200409
  Serious: Yes (Other)
  Sender: FDA-Public Use
  Company Number: US-HORIZON-RAV-0398-2019

PATIENT
  Age: 25 Year
  Sex: Male

DRUGS (2)
  1. LENVIMA [Suspect]
     Active Substance: LENVATINIB
     Indication: PRODUCT USED FOR UNKNOWN INDICATION
     Dosage: 12MG DAILY TO 8MG DAILY FOR 2 DAYS
  2. RAVICTI [Suspect]
     Active Substance: GLYCEROL PHENYLBUTYRATE
     Indication: UREA CYCLE DISORDER
     Dosage: 5ML BY MOUTH THREE TIMES DAILY WITH MEALS
     Route: 048
     Dates: start: 201910

REACTIONS (2)
  - Hepatocellular carcinoma [Unknown]
  - Disease progression [Unknown]
